FAERS Safety Report 6497733-2 (Version None)
Quarter: 2009Q4

REPORT INFORMATION
  Report Type: 
  Country: None (occurrence: None)
  Receive Date: 20091125
  Receipt Date: 20081107
  Transmission Date: 20100525
  Serious: Yes (Hospitalization)
  Sender: FDA-Public Use
  Company Number: 2008BH012205

PATIENT
  Age: 30 Year
  Sex: Female

DRUGS (1)
  1. DIANEAL [Suspect]
     Indication: PERITONEAL DIALYSIS
     Dosage: 10 L ; EVERY DAY ; IP
     Route: 033
     Dates: start: 20080814

REACTIONS (1)
  - HYPOTENSION [None]
